FAERS Safety Report 8005606-9 (Version None)
Quarter: 2011Q4

REPORT INFORMATION
  Report Type: 
  Country: None (occurrence: None)
  Receive Date: 20111223
  Receipt Date: 20111219
  Transmission Date: 20120403
  Serious: Yes (Other)
  Sender: FDA-Public Use
  Company Number: BR-PFIZER INC-2011308352

PATIENT
  Age: 23 Year
  Sex: Female
  Weight: 64 kg

DRUGS (2)
  1. CLONAZEPAM [Concomitant]
     Indication: ANXIETY
     Dosage: UNKNOWN DOSE, 5 DROPS
     Dates: start: 20111001
  2. PRISTIQ [Suspect]
     Indication: PANIC DISORDER
     Dosage: 50 MG, 1X/DAY
     Route: 048
     Dates: start: 20111201, end: 20111201

REACTIONS (8)
  - AGITATION [None]
  - SUICIDAL BEHAVIOUR [None]
  - MOOD ALTERED [None]
  - TACHYPHRENIA [None]
  - SOMNOLENCE [None]
  - DEPRESSED MOOD [None]
  - BRADYPHRENIA [None]
  - HEART RATE INCREASED [None]
